FAERS Safety Report 7927922-9 (Version None)
Quarter: 2011Q4

REPORT INFORMATION
  Report Type: 
  Country: None (occurrence: None)
  Receive Date: 20111116
  Receipt Date: 20111101
  Transmission Date: 20120403
  Serious: Yes (Hospitalization)
  Sender: FDA-Public Use
  Company Number: 2011SP003685

PATIENT
  Age: 56 Year
  Sex: Female

DRUGS (8)
  1. ALBUTEROL [Concomitant]
  2. NASONEX [Concomitant]
  3. PROZAC [Concomitant]
  4. ALVESCO [Suspect]
     Indication: CHRONIC OBSTRUCTIVE PULMONARY DISEASE
     Dosage: ;BID;INHALATION
     Route: 055
     Dates: start: 20110101
  5. ALVESCO [Suspect]
     Indication: ASTHMA
     Dosage: ;BID;INHALATION
     Route: 055
     Dates: start: 20110101
  6. VYTORIN [Concomitant]
  7. SERPQIE;   /01270901/ [Concomitant]
  8. PLAQUENIL [Concomitant]

REACTIONS (6)
  - CHOLECYSTITIS [None]
  - DRUG EFFECT DECREASED [None]
  - CHEST DISCOMFORT [None]
  - PANCREATITIS [None]
  - DEVICE MALFUNCTION [None]
  - DYSPNOEA [None]
